FAERS Safety Report 6768780-8 (Version None)
Quarter: 2010Q2

REPORT INFORMATION
  Report Type: 
  Country: None (occurrence: None)
  Receive Date: 20100611
  Receipt Date: 20100507
  Transmission Date: 20101027
  Serious: Yes (Other)
  Sender: FDA-Public Use
  Company Number: AUR-APL-2010-01438

PATIENT
  Sex: Female

DRUGS (8)
  1. AMLODIPINE [Suspect]
     Indication: HYPERTENSION
     Dosage: 7-8MG, QD-TID
  2. LISINOPRIL [Suspect]
     Indication: HYPERTENSION
  3. METFORMIN [Suspect]
     Indication: DIABETES MELLITUS
     Dosage: BID
  4. METOPROLOL [Suspect]
     Indication: HYPERTENSION
     Dosage: 50 MG
  5. GLIPIZIDE [Suspect]
     Indication: DIABETES MELLITUS
     Dosage: BID
  6. LEVOTHYROXINE SODIUM [Suspect]
     Indication: THYROID DISORDER
     Dosage: 0.005MG-DAILY
  7. LYRICA [Suspect]
     Dosage: 75 MFG - ORAL
     Route: 048
  8. NEURONTIN [Suspect]

REACTIONS (15)
  - APHAGIA [None]
  - ASTHENIA [None]
  - CARPAL TUNNEL SYNDROME [None]
  - CERVICOBRACHIAL SYNDROME [None]
  - COMPLEX REGIONAL PAIN SYNDROME [None]
  - DRUG INTERACTION [None]
  - EAR INFECTION [None]
  - FALL [None]
  - MALAISE [None]
  - MASTICATION DISORDER [None]
  - OEDEMA [None]
  - PAIN IN EXTREMITY [None]
  - SCIATICA [None]
  - TINNITUS [None]
  - WRIST FRACTURE [None]
